FAERS Safety Report 5776432-6 (Version None)
Quarter: 2008Q2

REPORT INFORMATION
  Report Type: 
  Country: None (occurrence: None)
  Receive Date: 20080617
  Receipt Date: 20080617
  Transmission Date: 20081010
  Serious: Yes (Disabling, Other)
  Sender: FDA-Public Use
  Company Number: None

PATIENT
  Sex: Female
  Weight: 72.5755 kg

DRUGS (2)
  1. DIGOXIN [Suspect]
     Indication: HEART RATE IRREGULAR
     Dosage: .125 1 DAYLY
     Dates: start: 20070901
  2. DIGITEX [Suspect]
     Dates: start: 20080401

REACTIONS (2)
  - DIZZINESS [None]
  - ROAD TRAFFIC ACCIDENT [None]
